FAERS Safety Report 16865233 (Version 1)
Quarter: 2019Q3

REPORT INFORMATION
  Report Type: Spontaneous
  Country: ES (occurrence: ES)
  Receive Date: 20190930
  Receipt Date: 20190930
  Transmission Date: 20191005
  Serious: Yes (Death, Hospitalization)
  Sender: FDA-Public Use
  Company Number: ES-SUN PHARMACEUTICAL INDUSTRIES LTD-2019R1-222030

PATIENT
  Age: 69 Year
  Sex: Female

DRUGS (4)
  1. GEMCITABINE. [Suspect]
     Active Substance: GEMCITABINE
     Indication: ADENOCARCINOMA PANCREAS
     Dosage: 1264 MILLIGRAM, WEEKLY
     Route: 042
     Dates: start: 20190122, end: 20190402
  2. DEXAMETASONA (722A) [Concomitant]
     Active Substance: DEXAMETHASONE
     Indication: PRODUCT USED FOR UNKNOWN INDICATION
     Dosage: WEEKLY
     Route: 065
     Dates: start: 20190122, end: 20190402
  3. ABRAXANE [Suspect]
     Active Substance: PACLITAXEL
     Indication: ADENOCARCINOMA PANCREAS
     Dosage: 158 MILLIGRAM, WEEKLY
     Route: 042
     Dates: start: 20190122, end: 20190402
  4. ONDANSETRON [Concomitant]
     Active Substance: ONDANSETRON
     Indication: ADENOCARCINOMA PANCREAS
     Dosage: UNK UNK, DAILY
     Route: 065
     Dates: start: 20190122, end: 20190402

REACTIONS (2)
  - Pneumonitis [Fatal]
  - Acute respiratory failure [Fatal]

NARRATIVE: CASE EVENT DATE: 20190415
